FAERS Safety Report 8332527-4 (Version None)
Quarter: 2012Q2

REPORT INFORMATION
  Report Type: 
  Country: None (occurrence: None)
  Receive Date: 20120503
  Receipt Date: 20120425
  Transmission Date: 20120825
  Serious: No
  Sender: FDA-Public Use
  Company Number: US-PFIZER INC-2012103487

PATIENT
  Sex: Female
  Weight: 53.515 kg

DRUGS (4)
  1. CITALOPRAM [Concomitant]
     Indication: ANXIETY
     Dosage: 20 MG, UNK
  2. ESTRATEST H.S. [Concomitant]
     Indication: HORMONE LEVEL ABNORMAL
     Dosage: UNK
  3. PENICILLIN G POTASSIUM [Suspect]
     Dosage: UNK
  4. CRESTOR [Concomitant]
     Indication: BLOOD CHOLESTEROL INCREASED
     Dosage: 10 MG, DAILY

REACTIONS (1)
  - DRUG HYPERSENSITIVITY [None]
